FAERS Safety Report 19069788 (Version 3)
Quarter: 2021Q3

REPORT INFORMATION
  Report Type: Spontaneous
  Country: JP (occurrence: JP)
  Receive Date: 20210329
  Receipt Date: 20210817
  Transmission Date: 20211014
  Serious: Yes (Hospitalization, Other)
  Sender: FDA-Public Use
  Company Number: JP-COLLEGIUM PHARMACEUTICAL, INC.-2021CGM00313

PATIENT
  Age: 7 Decade
  Sex: Male

DRUGS (11)
  1. TAPENTADOL [Suspect]
     Active Substance: TAPENTADOL
     Indication: CANCER PAIN
     Dosage: 150 MG, 1X/DAY
     Route: 048
     Dates: start: 20210105, end: 2021
  2. NALDEMEDINE TOSILATE [Concomitant]
     Active Substance: NALDEMEDINE TOSYLATE
  3. MAGMITT [Concomitant]
     Active Substance: MAGNESIUM OXIDE
  4. PANTETHINE [Concomitant]
     Active Substance: PANTETHINE
  5. ZOPICLONE [Concomitant]
     Active Substance: ZOPICLONE
  6. TAKELDA [Concomitant]
     Active Substance: ASPIRIN\LANSOPRAZOLE
  7. DILTIAZEM HYDROCHLORIDE. [Concomitant]
     Active Substance: DILTIAZEM HYDROCHLORIDE
  8. TAPENTADOL [Suspect]
     Active Substance: TAPENTADOL
     Dosage: 150 MG, 1X/DAY
     Route: 048
     Dates: start: 20210316
  9. OXINORM [Concomitant]
  10. TRANILAST [Concomitant]
     Active Substance: TRANILAST
  11. RINDERON A [Concomitant]
     Active Substance: BETAMETHASONE SODIUM PHOSPHATE\NEOMYCIN SULFATE

REACTIONS (1)
  - Ileus [Unknown]

NARRATIVE: CASE EVENT DATE: 20210313
